FAERS Safety Report 7725318-6 (Version None)
Quarter: 2011Q3

REPORT INFORMATION
  Report Type: 
  Country: None (occurrence: None)
  Receive Date: 20110902
  Receipt Date: 20110822
  Transmission Date: 20111222
  Serious: Yes (Other)
  Sender: FDA-Public Use
  Company Number: US-SHIRE-ALL1-2011-02227

PATIENT
  Sex: Male
  Weight: 24.9 kg

DRUGS (5)
  1. INTUNIV [Suspect]
     Indication: ATTENTION DEFICIT/HYPERACTIVITY DISORDER
     Dosage: 2 MG, 1X/DAY:QD
     Route: 048
     Dates: start: 20110309, end: 20110615
  2. INTUNIV [Suspect]
     Dosage: 2 UNK, 1X/DAY:QD ( IN THE MORNING)
     Route: 048
     Dates: start: 20110101
  3. NASONEX [Concomitant]
     Indication: RHINITIS ALLERGIC
     Dosage: UNK, UNKNOWN
     Route: 065
  4. INTUNIV [Suspect]
     Dosage: 1 MG, UNKNOWN
     Route: 048
  5. IBUPROFEN [Concomitant]
     Indication: PYREXIA
     Dosage: UNK, UNKNOWN
     Route: 065

REACTIONS (12)
  - SEDATION [None]
  - HALLUCINATION, AUDITORY [None]
  - NIGHTMARE [None]
  - AGITATION [None]
  - MUSCLE SPASMS [None]
  - INAPPROPRIATE SCHEDULE OF DRUG ADMINISTRATION [None]
  - DEPRESSED MOOD [None]
  - TONSILLITIS STREPTOCOCCAL [None]
  - FATIGUE [None]
  - AFFECT LABILITY [None]
  - DECREASED APPETITE [None]
  - ANXIETY [None]
